FAERS Safety Report 14346762 (Version 2)
Quarter: 2018Q1

REPORT INFORMATION
  Report Type: Spontaneous
  Country: US (occurrence: US)
  Receive Date: 20180103
  Receipt Date: 20180301
  Transmission Date: 20180509
  Serious: Yes (Hospitalization, Other)
  Sender: FDA-Public Use
  Company Number: US-PFIZER INC-2017490796

PATIENT
  Age: 22 Year
  Sex: Female

DRUGS (1)
  1. DEPO-PROVERA [Suspect]
     Active Substance: MEDROXYPROGESTERONE ACETATE
     Indication: CONTRACEPTION
     Dosage: 150 ML, (ONCE IN LEFT ARM) EVERY 3 MONTHS
     Dates: start: 2015

REACTIONS (2)
  - Endometrial disorder [Unknown]
  - Endometrial neoplasm [Recovered/Resolved]

NARRATIVE: CASE EVENT DATE: 20170406
